FAERS Safety Report 15423518 (Version 2)
Quarter: 2018Q4

REPORT INFORMATION
  Report Type: Spontaneous
  Country: US (occurrence: US)
  Receive Date: 20180925
  Receipt Date: 20181126
  Transmission Date: 20190204
  Serious: No
  Sender: FDA-Public Use
  Company Number: US-PFIZER INC-2018383541

PATIENT
  Age: 63 Year
  Sex: Male

DRUGS (1)
  1. XELJANZ XR [Suspect]
     Active Substance: TOFACITINIB CITRATE
     Dosage: 11 MG, UNK
     Dates: start: 201808

REACTIONS (10)
  - Sneezing [Unknown]
  - Fatigue [Unknown]
  - Back pain [Unknown]
  - Nasopharyngitis [Unknown]
  - Drug ineffective [Unknown]
  - Diarrhoea [Unknown]
  - Urinary bladder polyp [Unknown]
  - Blood urine [Unknown]
  - Prostatomegaly [Unknown]
  - Sinus congestion [Unknown]
